FAERS Safety Report 14181536 (Version 1)
Quarter: 2017Q4

REPORT INFORMATION
  Report Type: Spontaneous
  Country: US (occurrence: US)
  Receive Date: 20171113
  Receipt Date: 20171113
  Transmission Date: 20180321
  Serious: Yes (Other)
  Sender: FDA-Public Use
  Company Number: US-TEVA-824371ACC

PATIENT
  Sex: Female

DRUGS (1)
  1. PREDNISONE. [Suspect]
     Active Substance: PREDNISONE
     Dates: start: 20171102, end: 20171104

REACTIONS (4)
  - Swelling face [Unknown]
  - Anaphylactic reaction [Unknown]
  - Allergic reaction to excipient [Unknown]
  - Eye swelling [Unknown]

NARRATIVE: CASE EVENT DATE: 201711
